FAERS Safety Report 4773983-8 (Version None)
Quarter: 2005Q3

REPORT INFORMATION
  Report Type: 
  Country: None (occurrence: None)
  Receive Date: 20050919
  Receipt Date: 20050907
  Transmission Date: 20060218
  Serious: Yes (Disabling)
  Sender: FDA-Public Use
  Company Number: HQWYE893212AUG05

PATIENT
  Age: 31 Year
  Sex: Female

DRUGS (10)
  1. EFFEXOR [Suspect]
     Indication: ANXIETY
     Dosage: SEE IMAGE
     Dates: start: 20050101, end: 20050101
  2. EFFEXOR [Suspect]
     Indication: DEPRESSION
     Dosage: SEE IMAGE
     Dates: start: 20050101, end: 20050101
  3. EFFEXOR [Suspect]
     Indication: ANXIETY
     Dosage: SEE IMAGE
     Dates: start: 20050101, end: 20050101
  4. EFFEXOR [Suspect]
     Indication: DEPRESSION
     Dosage: SEE IMAGE
     Dates: start: 20050101, end: 20050101
  5. EFFEXOR [Suspect]
     Indication: ANXIETY
     Dosage: SEE IMAGE
     Dates: start: 20050401, end: 20050101
  6. EFFEXOR [Suspect]
     Indication: DEPRESSION
     Dosage: SEE IMAGE
     Dates: start: 20050401, end: 20050101
  7. EFFEXOR [Suspect]
     Indication: ANXIETY
     Dosage: SEE IMAGE
     Dates: start: 20050801, end: 20050801
  8. EFFEXOR [Suspect]
     Indication: DEPRESSION
     Dosage: SEE IMAGE
     Dates: start: 20050801, end: 20050801
  9. EFFEXOR [Suspect]
     Indication: ANXIETY
     Dosage: SEE IMAGE
     Dates: start: 20050801
  10. EFFEXOR [Suspect]
     Indication: DEPRESSION
     Dosage: SEE IMAGE
     Dates: start: 20050801

REACTIONS (14)
  - ADVERSE DRUG REACTION [None]
  - AGITATION [None]
  - AMNESIA [None]
  - CRYING [None]
  - DEPRESSED MOOD [None]
  - DISTRACTIBILITY [None]
  - DISTURBANCE IN ATTENTION [None]
  - DIZZINESS [None]
  - DRUG WITHDRAWAL SYNDROME [None]
  - EMOTIONAL DISTRESS [None]
  - NAUSEA [None]
  - PARAESTHESIA [None]
  - VERTIGO [None]
  - VISION BLURRED [None]
